FAERS Safety Report 6438879-4 (Version None)
Quarter: 2009Q4

REPORT INFORMATION
  Report Type: 
  Country: None (occurrence: None)
  Receive Date: 20091110
  Receipt Date: 20091026
  Transmission Date: 20100525
  Serious: Yes (Hospitalization, Other)
  Sender: FDA-Public Use
  Company Number: 2009AC000054

PATIENT
  Age: 54 Year
  Sex: Female
  Weight: 150.1406 kg

DRUGS (41)
  1. DIGOXIN [Suspect]
     Indication: HEART RATE IRREGULAR
     Dosage: 0.125 MG; QD; PO 0.25 MG; PO
     Route: 048
  2. INSULIN [Concomitant]
  3. CARDIZEM [Concomitant]
  4. LASIX [Concomitant]
  5. GLUCOPHAGE [Concomitant]
  6. GLYBURIDE [Concomitant]
  7. ATROVENT [Concomitant]
  8. PRILOSEC [Concomitant]
  9. VALIUM [Concomitant]
  10. PAXIL [Concomitant]
  11. AZMACORT [Concomitant]
  12. ALBUTEROL [Concomitant]
  13. INDERAL [Concomitant]
  14. TYLOX [Concomitant]
  15. SEREVENT [Concomitant]
  16. MOTRIN [Concomitant]
  17. COREG [Concomitant]
  18. COUMADIN [Concomitant]
  19. LORTAB [Concomitant]
  20. ASPIRIN [Concomitant]
  21. LISINOPRIL [Concomitant]
  22. MICRO-K [Concomitant]
  23. CARDIZEM [Concomitant]
  24. XANAX [Concomitant]
  25. NEBULIZER [Concomitant]
  26. DOUNEB [Concomitant]
  27. FLAGYL [Concomitant]
  28. LOVENOX [Concomitant]
  29. NEXIUM [Concomitant]
  30. POTASSIUM [Concomitant]
  31. NYSTATIN [Concomitant]
  32. DESITIN [Concomitant]
  33. CARTIXT XT [Concomitant]
  34. METFORMIN HCL [Concomitant]
  35. OXYCONTIN [Concomitant]
  36. LORTAB [Concomitant]
  37. BACTRIM DS [Concomitant]
  38. DOXYCYLINE [Concomitant]
  39. ADVAIR DISKUS 100/50 [Concomitant]
  40. VALIUM [Concomitant]
  41. LANTUS [Concomitant]

REACTIONS (37)
  - ABSCESS [None]
  - ANGINA PECTORIS [None]
  - ANXIETY [None]
  - ARTHROPATHY [None]
  - ASTHMA [None]
  - ATRIAL FIBRILLATION [None]
  - ATRIAL FLUTTER [None]
  - BIPOLAR DISORDER [None]
  - BLOOD CHOLESTEROL INCREASED [None]
  - CARDIAC FAILURE CONGESTIVE [None]
  - CARDIOMEGALY [None]
  - CARDIOVASCULAR DISORDER [None]
  - CELLULITIS [None]
  - CHRONIC OBSTRUCTIVE PULMONARY DISEASE [None]
  - CLOSTRIDIUM DIFFICILE COLITIS [None]
  - CORONARY ARTERY DISEASE [None]
  - DEEP VEIN THROMBOSIS [None]
  - DEPRESSION [None]
  - DIABETES MELLITUS INADEQUATE CONTROL [None]
  - DIABETIC ULCER [None]
  - ECONOMIC PROBLEM [None]
  - FAMILY STRESS [None]
  - GAIT DISTURBANCE [None]
  - GASTROINTESTINAL DISORDER [None]
  - HEART RATE IRREGULAR [None]
  - INTERVERTEBRAL DISC PROTRUSION [None]
  - MULTIPLE INJURIES [None]
  - MYOCARDIAL INFARCTION [None]
  - NECK PAIN [None]
  - NEUROPATHY PERIPHERAL [None]
  - PAIN [None]
  - PAIN OF SKIN [None]
  - SCHIZOPHRENIA [None]
  - SOCIAL PROBLEM [None]
  - UPPER LIMB FRACTURE [None]
  - UTERINE CANCER [None]
  - VENTRICULAR FIBRILLATION [None]
